FAERS Safety Report 5249900-3 (Version None)
Quarter: 2007Q1

REPORT INFORMATION
  Report Type: 
  Country: None (occurrence: None)
  Receive Date: 20070228
  Receipt Date: 20060627
  Transmission Date: 20070707
  Serious: No
  Sender: FDA-Public Use
  Company Number: US-GLAXOSMITHKLINE-A0542667A

PATIENT
  Age: 43 Year
  Sex: Female

DRUGS (13)
  1. LAMICTAL [Suspect]
     Dosage: 75MG TWICE PER DAY
     Route: 048
     Dates: start: 20041201
  2. OXYCONTIN [Concomitant]
     Dosage: 40MG AS REQUIRED
  3. BELLADONA [Concomitant]
  4. BECLOVENT [Concomitant]
  5. COMPAZINE [Concomitant]
  6. PLAQUENIL [Concomitant]
     Route: 065
  7. ZINC [Concomitant]
     Route: 065
  8. VITAMIN B COMPLEX CAP [Concomitant]
     Route: 065
  9. ALPRAZOLAM [Concomitant]
     Route: 065
  10. OXYCODONE HCL [Concomitant]
     Route: 065
  11. LIDEX [Concomitant]
     Route: 065
  12. HYOSCYAMINE [Concomitant]
     Route: 065
  13. TETRACYCLINE [Concomitant]
     Route: 065

REACTIONS (5)
  - BLOOD PRESSURE INCREASED [None]
  - CLUSTER HEADACHE [None]
  - HEADACHE [None]
  - OBSESSIVE THOUGHTS [None]
  - TEMPERATURE REGULATION DISORDER [None]
